FAERS Safety Report 7763892-4 (Version None)
Quarter: 2011Q3

REPORT INFORMATION
  Report Type: 
  Country: None (occurrence: None)
  Receive Date: 20110919
  Receipt Date: 20110902
  Transmission Date: 20111222
  Serious: Yes (Death, Life-Threatening, Hospitalization)
  Sender: FDA-Public Use
  Company Number: 2009B1007177

PATIENT
  Age: 59 Year
  Sex: Male
  Weight: 64 kg

DRUGS (12)
  1. ZEVALIN [Suspect]
     Indication: FOLLICLE CENTRE LYMPHOMA, FOLLICULAR GRADE I, II, III STAGE IV
     Dosage: 130 MB; 1X; IV
     Route: 042
     Dates: start: 20090210, end: 20090210
  2. OTHER ANALGESICS AND ANTIPYRETICS [Concomitant]
  3. RITUXAN [Suspect]
     Indication: FOLLICLE CENTRE LYMPHOMA, FOLLICULAR GRADE I, II, III STAGE IV
     Dosage: 250 MG/M2; 1X; IV DRIP
     Route: 041
     Dates: start: 20090217, end: 20090217
  4. ANTIHISTAMINES [Concomitant]
  5. ANTIBIOTICS [Suspect]
     Indication: INTERSTITIAL LUNG DISEASE
  6. ZEVALIN [Suspect]
     Indication: FOLLICLE CENTRE LYMPHOMA, FOLLICULAR GRADE I, II, III STAGE IV
     Dosage: 944 MBQ; 1X; IV
     Route: 042
     Dates: start: 20090217, end: 20090217
  7. RITUXAN [Suspect]
     Indication: FOLLICLE CENTRE LYMPHOMA, FOLLICULAR GRADE I, II, III STAGE IV
     Dosage: 250 MG/M2; 1X; IV DRIP
     Route: 042
     Dates: start: 20090210, end: 20090210
  8. BAKTAR TAB [Concomitant]
  9. NIZATIDINE [Concomitant]
  10. MS CONTIN [Concomitant]
  11. ITRIZOLE CAPSULE [Concomitant]
  12. FOY [Concomitant]

REACTIONS (17)
  - DRUG INEFFECTIVE [None]
  - PYREXIA [None]
  - OPPORTUNISTIC INFECTION [None]
  - EMBOLIC CEREBRAL INFARCTION [None]
  - HERPES ZOSTER [None]
  - DIABETES INSIPIDUS [None]
  - ARTERIOSCLEROSIS [None]
  - BLOOD PRESSURE DECREASED [None]
  - CAROTID ARTERY OCCLUSION [None]
  - PLATELET COUNT DECREASED [None]
  - INTERSTITIAL LUNG DISEASE [None]
  - ANAEMIA [None]
  - WHITE BLOOD CELL COUNT DECREASED [None]
  - LUNG DISORDER [None]
  - CAROTID ARTERIOSCLEROSIS [None]
  - FOLLICLE CENTRE LYMPHOMA, FOLLICULAR GRADE I, II, III STAGE IV [None]
  - NEOPLASM PROGRESSION [None]
